FAERS Safety Report 13965100 (Version 1)
Quarter: 2017Q3

REPORT INFORMATION
  Report Type: Spontaneous
  Country: US (occurrence: US)
  Receive Date: 20170913
  Receipt Date: 20170913
  Transmission Date: 20171128
  Serious: No
  Sender: FDA-Public Use
  Company Number: US-PERRIGO-17US024477

PATIENT
  Sex: Female
  Weight: 81.63 kg

DRUGS (3)
  1. EVAMIST [Suspect]
     Active Substance: ESTRADIOL
     Indication: PRODUCT USED FOR UNKNOWN INDICATION
     Dosage: 4.59 MG, QD
     Route: 061
     Dates: start: 2010, end: 20170424
  2. EVAMIST [Suspect]
     Active Substance: ESTRADIOL
     Dosage: 4.59 MG, QD
     Route: 061
     Dates: start: 20170425, end: 20170605
  3. EVAMIST [Suspect]
     Active Substance: ESTRADIOL
     Dosage: ONE APPLICATION, QD
     Route: 061
     Dates: start: 20170606

REACTIONS (1)
  - Underdose [Not Recovered/Not Resolved]

NARRATIVE: CASE EVENT DATE: 20170606
